FAERS Safety Report 14354542 (Version 2)
Quarter: 2018Q1

REPORT INFORMATION
  Report Type: Report from Study
  Country: PK (occurrence: PK)
  Receive Date: 20180105
  Receipt Date: 20180109
  Transmission Date: 20180509
  Serious: Yes (Death, Other)
  Sender: FDA-Public Use
  Company Number: PHHY2018PK000809

PATIENT
  Sex: Male
  Weight: 50 kg

DRUGS (1)
  1. TASIGNA [Suspect]
     Active Substance: NILOTINIB
     Indication: CHRONIC MYELOID LEUKAEMIA
     Dosage: 600 MG, BID
     Route: 048
     Dates: start: 20171030

REACTIONS (11)
  - Decreased appetite [Fatal]
  - Orthopnoea [Fatal]
  - Cough [Fatal]
  - Cardio-respiratory arrest [Fatal]
  - Palpitations [Fatal]
  - Nausea [Fatal]
  - Oedema peripheral [Fatal]
  - Pulmonary oedema [Unknown]
  - Chest discomfort [Fatal]
  - Dyspnoea [Fatal]
  - Fatigue [Fatal]
